FAERS Safety Report 5128891-X (Version None)
Quarter: 2006Q4

REPORT INFORMATION
  Report Type: 
  Country: None (occurrence: None)
  Receive Date: 20061017
  Receipt Date: 20060605
  Transmission Date: 20070319
  Serious: No
  Sender: FDA-Public Use
  Company Number: US-GLAXOSMITHKLINE-A0607944A

PATIENT
  Age: 8 Year
  Sex: Male

DRUGS (2)
  1. CEFTIN [Suspect]
     Indication: DRUG USE FOR UNKNOWN INDICATION
     Dosage: 1TSP TWICE PER DAY
     Route: 048
     Dates: start: 20060520
  2. NO CONCURRENT MEDICATION [Concomitant]

REACTIONS (1)
  - POOR QUALITY DRUG ADMINISTERED [None]
